FAERS Safety Report 9280914 (Version 1)
Quarter: 2013Q2

REPORT INFORMATION
  Report Type: Spontaneous
  Country: US (occurrence: None)
  Receive Date: 20130508
  Receipt Date: 20130508
  Transmission Date: 20140414
  Serious: Yes (Other)
  Sender: FDA-Public Use
  Company Number: None

PATIENT
  Age: 65 Year
  Sex: Male
  Weight: 106.6 kg

DRUGS (1)
  1. AXIRON [Suspect]
     Dosage: TWO PUMPS
     Dates: start: 20130101, end: 20130507

REACTIONS (2)
  - Incorrect dose administered [None]
  - Device malfunction [None]
